FAERS Safety Report 8288071-6 (Version None)
Quarter: 2012Q2

REPORT INFORMATION
  Report Type: 
  Country: None (occurrence: None)
  Receive Date: 20120416
  Receipt Date: 20120406
  Transmission Date: 20120825
  Serious: Yes (Hospitalization, Other)
  Sender: FDA-Public Use
  Company Number: US-NAPPMUNDI-USA-2012-0084866

PATIENT
  Sex: Female

DRUGS (2)
  1. OXYCONTIN [Suspect]
     Indication: PAIN
     Dosage: 40 MG, TID
     Dates: end: 20111122
  2. OXYCONTIN [Suspect]
     Dosage: 40 MG, DAILY
     Dates: start: 20111122, end: 20120222

REACTIONS (10)
  - LOSS OF CONSCIOUSNESS [None]
  - AMNESIA [None]
  - HYPOKINESIA [None]
  - OXYGEN SUPPLEMENTATION [None]
  - DRUG WITHDRAWAL SYNDROME [None]
  - FEELING ABNORMAL [None]
  - ACCIDENTAL OVERDOSE [None]
  - INTENTIONAL DRUG MISUSE [None]
  - HYPERSOMNIA [None]
  - THINKING ABNORMAL [None]
